FAERS Safety Report 5455292-7 (Version None)
Quarter: 2007Q3

REPORT INFORMATION
  Report Type: 
  Country: None (occurrence: None)
  Receive Date: 20070918
  Receipt Date: 20070912
  Transmission Date: 20080115
  Serious: Yes (Life-Threatening, Disabling)
  Sender: FDA-Public Use
  Company Number: JP-ALLERGAN-0709639US

PATIENT
  Sex: Male

DRUGS (8)
  1. ALESION TABLET [Suspect]
     Indication: ECZEMA
     Dosage: 20 MG, QD
     Route: 048
     Dates: start: 20070731, end: 20070807
  2. PROPADERM [Concomitant]
     Indication: ECZEMA
     Dosage: UNK, UNK
     Route: 061
     Dates: start: 20070731
  3. ONON [Concomitant]
     Indication: ASTHMA
     Dosage: 112.5 MG, QID
     Route: 048
  4. FLUTIDE [Concomitant]
     Indication: ASTHMA
     Dosage: 200 UG, QD
     Route: 055
  5. LENDORMIN [Concomitant]
     Indication: INSOMNIA
     Dosage: 0.25 MG, QD
     Route: 048
  6. ISODINE [Concomitant]
     Indication: ACUTE MYELOID LEUKAEMIA RECURRENT
     Dosage: 30 ML, QD
     Route: 048
  7. ROXATIDINE ACETATE HCL [Concomitant]
     Indication: GASTRITIS
     Dosage: 75 MG, BID
  8. MUCOSTA [Concomitant]
     Indication: GASTRITIS
     Dosage: 100 MG, TID
     Route: 048

REACTIONS (1)
  - PLATELET COUNT DECREASED [None]
